FAERS Safety Report 10485401 (Version 1)
Quarter: 2014Q3

REPORT INFORMATION
  Report Type: Spontaneous
  Country: US (occurrence: US)
  Receive Date: 20140930
  Receipt Date: 20140930
  Transmission Date: 20150326
  Serious: No
  Sender: FDA-Public Use
  Company Number: US-009507513-1409USA015480

PATIENT

DRUGS (2)
  1. TICE BCG [Suspect]
     Active Substance: BACILLUS CALMETTE-GUERIN SUBSTRAIN TICE LIVE ANTIGEN
     Indication: URINARY RETENTION
     Dosage: UNK
     Route: 043
     Dates: start: 20140924, end: 20140924
  2. TICE BCG [Suspect]
     Active Substance: BACILLUS CALMETTE-GUERIN SUBSTRAIN TICE LIVE ANTIGEN
     Indication: URINARY INCONTINENCE
     Dosage: UNK
     Route: 043
     Dates: start: 20140910, end: 20140910

REACTIONS (1)
  - Occupational exposure to product [Unknown]
